FAERS Safety Report 12318724 (Version 1)
Quarter: 2016Q2

REPORT INFORMATION
  Report Type: Spontaneous
  Country: US (occurrence: US)
  Receive Date: 20160429
  Receipt Date: 20160429
  Transmission Date: 20160815
  Serious: Yes (Other)
  Sender: FDA-Public Use
  Company Number: US-TAKEDA-2016TUS006819

PATIENT
  Age: 22 Year
  Sex: Female

DRUGS (8)
  1. COLAZAL [Concomitant]
     Active Substance: BALSALAZIDE DISODIUM
  2. FLAGYL [Concomitant]
     Active Substance: METRONIDAZOLE\METRONIDAZOLE HYDROCHLORIDE
  3. ENTYVIO [Suspect]
     Active Substance: VEDOLIZUMAB
     Indication: COLITIS ULCERATIVE
     Dosage: UNK
     Route: 065
  4. ASACOL [Concomitant]
     Active Substance: MESALAMINE
  5. PRED                               /00016201/ [Concomitant]
     Active Substance: PREDNISONE
  6. CORTIFOAM [Concomitant]
     Active Substance: HYDROCORTISONE ACETATE
  7. 6-MP [Concomitant]
     Active Substance: MERCAPTOPURINE
  8. ROWASA [Concomitant]
     Active Substance: MESALAMINE

REACTIONS (1)
  - Intestinal anastomosis [Unknown]

NARRATIVE: CASE EVENT DATE: 20140828
